FAERS Safety Report 5469667-3 (Version None)
Quarter: 2007Q3

REPORT INFORMATION
  Report Type: 
  Country: None (occurrence: None)
  Receive Date: 20070927
  Receipt Date: 20070921
  Transmission Date: 20080115
  Serious: Yes (Death)
  Sender: FDA-Public Use
  Company Number: GB-ROCHE-516898

PATIENT
  Age: 20 Year
  Sex: Male

DRUGS (1)
  1. ISOTRETINOIN [Suspect]
     Indication: ACNE CONGLOBATA
     Route: 048
     Dates: start: 19980101, end: 19980501

REACTIONS (1)
  - AORTIC RUPTURE [None]
